FAERS Safety Report 4545232-7 (Version None)
Quarter: 2004Q4

REPORT INFORMATION
  Report Type: 
  Country: None (occurrence: None)
  Receive Date: 20041222
  Receipt Date: 20040713
  Transmission Date: 20050328
  Serious: Yes (Hospitalization, Other)
  Sender: FDA-Public Use
  Company Number: USA040772420

PATIENT
  Age: 71 Year
  Sex: Male
  Weight: 76 kg

DRUGS (2)
  1. HUMULIN-HUMAN INSULIN (RDNA) :25% LISPRO, 75% NPL (LI [Suspect]
     Dosage: 30 U DAY
  2. HUMULIN 70/30 [Suspect]
     Dates: start: 19890101

REACTIONS (1)
  - AORTIC VALVE REPLACEMENT [None]
